FAERS Safety Report 4555586-3 (Version None)
Quarter: 2005Q1

REPORT INFORMATION
  Report Type: 
  Country: None (occurrence: None)
  Receive Date: 20050118
  Receipt Date: 20050110
  Transmission Date: 20050727
  Serious: Yes (Hospitalization)
  Sender: FDA-Public Use
  Company Number: 05-01-0054

PATIENT
  Sex: Female

DRUGS (4)
  1. TRAMADOL HCL [Suspect]
     Dosage: 500 MG
     Dates: start: 20000101, end: 20041208
  2. SPIRONOLACTONE [Suspect]
     Dosage: 200 MG QD
  3. AMITRIPTYLINE HCL [Suspect]
     Dosage: 25 MG NOCTE
  4. LANSOPRAZOLE [Concomitant]

REACTIONS (5)
  - AGGRESSION [None]
  - DEEP VEIN THROMBOSIS [None]
  - HALLUCINATION [None]
  - LIVER DISORDER [None]
  - MALAISE [None]
